FAERS Safety Report 18126592 (Version 1)
Quarter: 2020Q3

REPORT INFORMATION
  Report Type: Spontaneous
  Country: ES (occurrence: ES)
  Receive Date: 20200809
  Receipt Date: 20200809
  Transmission Date: 20201103
  Serious: Yes (Death)
  Sender: FDA-Public Use
  Company Number: ES-B.I. PHARMACEUTICALS,INC./RIDGEFIELD-2020-12-040225

PATIENT
  Age: 60 Year
  Sex: Male
  Weight: 68 kg

DRUGS (5)
  1. EUCREAS [Concomitant]
     Active Substance: METFORMIN HYDROCHLORIDE\VILDAGLIPTIN
     Indication: TYPE 2 DIABETES MELLITUS
     Dosage: 50/850MG; 1 TABLET EVERY 12 HOURS
     Route: 065
     Dates: start: 20180119
  2. REPAGLINIDA [Concomitant]
     Active Substance: REPAGLINIDE
     Indication: TYPE 2 DIABETES MELLITUS
     Dosage: 1 TABLET EVERY 8 HOURS
     Route: 065
     Dates: start: 20200227
  3. ADIRO [Concomitant]
     Active Substance: ASPIRIN
     Indication: TYPE 2 DIABETES MELLITUS
     Dosage: 1 TABLET EVERY DAY
     Route: 065
     Dates: start: 20180103
  4. ZARATOR [ATORVASTATIN] [Concomitant]
     Indication: TYPE IIA HYPERLIPIDAEMIA
     Dosage: 1 TABLET EVERY DAY
     Route: 065
     Dates: start: 20200311
  5. JARDIANCE [Suspect]
     Active Substance: EMPAGLIFLOZIN
     Indication: TYPE 2 DIABETES MELLITUS
     Dosage: 1 TABLET EVERY DAY
     Route: 065
     Dates: start: 20200227

REACTIONS (2)
  - Diabetic ketoacidosis [Fatal]
  - Staphylococcal sepsis [Fatal]

NARRATIVE: CASE EVENT DATE: 20200625
